FAERS Safety Report 6308780-5 (Version None)
Quarter: 2009Q3

REPORT INFORMATION
  Report Type: 
  Country: None (occurrence: None)
  Receive Date: 20090813
  Receipt Date: 20080609
  Transmission Date: 20100115
  Serious: No
  Sender: FDA-Public Use
  Company Number: US-ALLERGAN-0806939US

PATIENT
  Age: 80 Year
  Sex: Female

DRUGS (3)
  1. COMBIGAN [Suspect]
     Indication: GLAUCOMA
     Dosage: 1 GTT, UNKNOWN
     Route: 047
     Dates: start: 20080605, end: 20080609
  2. AVAPRO [Concomitant]
     Indication: BLOOD PRESSURE INCREASED
     Route: 048
  3. XALATAN [Concomitant]
     Indication: GLAUCOMA
     Dosage: 1 GTT, QHS
     Route: 047
     Dates: start: 20080118

REACTIONS (1)
  - OEDEMA PERIPHERAL [None]
